FAERS Safety Report 10103867 (Version 2)
Quarter: 2014Q2

REPORT INFORMATION
  Report Type: Other
  Country: US (occurrence: US)
  Receive Date: 20140424
  Receipt Date: 20140618
  Transmission Date: 20141212
  Serious: Yes (Hospitalization, Other)
  Sender: FDA-Public Use
  Company Number: US-GSKPPD-2014GSK001473

PATIENT
  Age: 63 Year
  Sex: Male

DRUGS (11)
  1. AVANDIA [Suspect]
     Indication: DIABETES MELLITUS
     Route: 048
     Dates: start: 2005
  2. PLAVIX [Concomitant]
     Route: 048
  3. METOPROLOL [Concomitant]
  4. LIPITOR [Concomitant]
  5. ENTERIC COATED ASPIRIN [Concomitant]
  6. TOPROL XL [Concomitant]
  7. PRINIVIL [Concomitant]
  8. NORVASC [Concomitant]
  9. LOPRESSOR [Concomitant]
  10. NITROGLYCERIN [Concomitant]
  11. POTASSIUM CHLORIDE [Concomitant]

REACTIONS (5)
  - Coronary artery bypass [Recovered/Resolved]
  - Coronary artery disease [Recovered/Resolved]
  - Arteriosclerosis coronary artery [Recovered/Resolved]
  - Atrial fibrillation [Recovered/Resolved]
  - Cardiac failure congestive [Recovered/Resolved]
